FAERS Safety Report 19566773 (Version 4)
Quarter: 2021Q3

REPORT INFORMATION
  Report Type: Spontaneous
  Country: US (occurrence: US)
  Receive Date: 20210714
  Receipt Date: 20210811
  Transmission Date: 20211014
  Serious: No
  Sender: FDA-Public Use
  Company Number: US-SA-2021SA229077

PATIENT
  Age: 77 Year
  Sex: Male

DRUGS (5)
  1. SALICYLAMIDE [Concomitant]
     Active Substance: SALICYLAMIDE
     Indication: ECZEMA
     Dosage: UNK
  2. SALICYLAMIDE [Concomitant]
     Active Substance: SALICYLAMIDE
  3. DUPIXENT [Suspect]
     Active Substance: DUPILUMAB
     Dosage: 300 MG, QOW
     Route: 058
     Dates: start: 202107
  4. DUPIXENT [Suspect]
     Active Substance: DUPILUMAB
     Indication: DERMATITIS ATOPIC
     Dosage: 600 MG, 1X
     Route: 058
     Dates: start: 20210709, end: 20210709
  5. INSULIN [Concomitant]
     Active Substance: INSULIN NOS

REACTIONS (3)
  - Incorrect dose administered [Unknown]
  - Product preparation error [Not Recovered/Not Resolved]
  - Injection site pain [Not Recovered/Not Resolved]

NARRATIVE: CASE EVENT DATE: 20210709
